FAERS Safety Report 17043385 (Version 2)
Quarter: 2019Q4

REPORT INFORMATION
  Report Type: Spontaneous
  Country: PK (occurrence: PK)
  Receive Date: 20191118
  Receipt Date: 20191203
  Transmission Date: 20200122
  Serious: Yes (Life-Threatening, Hospitalization, Other)
  Sender: FDA-Public Use
  Company Number: PK-SA-2019SA318783

PATIENT
  Age: 35 Year
  Sex: Female

DRUGS (3)
  1. DOXORUBICIN [Suspect]
     Active Substance: DOXORUBICIN
     Indication: INVASIVE DUCTAL BREAST CARCINOMA
     Dosage: UNK, QCY
     Route: 065
  2. CYCLOPHOSPHAMIDE. [Suspect]
     Active Substance: CYCLOPHOSPHAMIDE
     Indication: INVASIVE DUCTAL BREAST CARCINOMA
     Dosage: UNK, QCY
     Route: 065
  3. DOCETAXEL. [Suspect]
     Active Substance: DOCETAXEL
     Indication: INVASIVE DUCTAL BREAST CARCINOMA
     Dosage: UNK UNK, QCY INJECTION

REACTIONS (18)
  - Necrosis [Recovering/Resolving]
  - Intestinal gangrene [Recovering/Resolving]
  - Peritonitis [Recovering/Resolving]
  - Gastrointestinal sounds abnormal [Recovering/Resolving]
  - Abdominal distension [Recovering/Resolving]
  - Intestinal ulcer [Recovering/Resolving]
  - Abdominal pain [Recovering/Resolving]
  - Tachypnoea [Recovering/Resolving]
  - Hypotension [Recovering/Resolving]
  - Tachycardia [Recovering/Resolving]
  - Abdominal tenderness [Recovering/Resolving]
  - Klebsiella infection [Recovering/Resolving]
  - Abdominal rigidity [Recovering/Resolving]
  - Necrotising colitis [Recovering/Resolving]
  - Large intestine perforation [Recovering/Resolving]
  - Inflammation [Recovering/Resolving]
  - Diarrhoea [Recovering/Resolving]
  - Constipation [Recovering/Resolving]
